FAERS Safety Report 8064118-7 (Version None)
Quarter: 2012Q1

REPORT INFORMATION
  Report Type: 
  Country: None (occurrence: None)
  Receive Date: 20120123
  Receipt Date: 20120120
  Transmission Date: 20120608
  Serious: Yes (Death, Hospitalization)
  Sender: FDA-Public Use
  Company Number: US-GLAXOSMITHKLINE-B0715341A

PATIENT
  Age: 56 Year
  Sex: Male

DRUGS (5)
  1. VERAPAMIL [Concomitant]
  2. DIABETA [Concomitant]
  3. AVANDIA [Suspect]
     Indication: DIABETES MELLITUS
     Dosage: 8MG PER DAY
     Route: 048
     Dates: start: 20030101, end: 20081005
  4. PRILOSEC [Concomitant]
  5. ALLOPURINOL [Concomitant]

REACTIONS (2)
  - VENTRICULAR FIBRILLATION [None]
  - MYOCARDIAL INFARCTION [None]
